FAERS Safety Report 24113085 (Version 3)
Quarter: 2024Q3

REPORT INFORMATION
  Report Type: Spontaneous
  Country: US (occurrence: US)
  Receive Date: 20240719
  Receipt Date: 20240822
  Transmission Date: 20241016
  Serious: Yes (Other)
  Sender: RADIUS PHARM
  Company Number: US-RADIUS HEALTH, INC.-2024US004079

PATIENT
  Sex: Female

DRUGS (2)
  1. TYMLOS [Suspect]
     Active Substance: ABALOPARATIDE
     Indication: Product used for unknown indication
     Dosage: 3 CLICKS QD
     Dates: start: 2024, end: 202405
  2. TYMLOS [Suspect]
     Active Substance: ABALOPARATIDE
     Dosage: 4 CLICKS QD
     Dates: start: 202406, end: 2024

REACTIONS (12)
  - Condition aggravated [Unknown]
  - Atrial fibrillation [Unknown]
  - Lyme disease [Unknown]
  - Heart rate irregular [Unknown]
  - Dyspepsia [Unknown]
  - Chest discomfort [Unknown]
  - Oesophageal pain [Unknown]
  - Palpitations [Unknown]
  - Malaise [Unknown]
  - Headache [Unknown]
  - Back pain [Not Recovered/Not Resolved]
  - Intentional product misuse [Unknown]

NARRATIVE: CASE EVENT DATE: 20240101
